FAERS Safety Report 9591621 (Version 1)
Quarter: 2013Q4

REPORT INFORMATION
  Report Type: Spontaneous
  Country: US (occurrence: US)
  Receive Date: 20131003
  Receipt Date: 20131003
  Transmission Date: 20140711
  Serious: No
  Sender: FDA-Public Use
  Company Number: US-AMGEN-USASP2012081568

PATIENT
  Age: 54 Year
  Sex: Female
  Weight: 87.08 kg

DRUGS (5)
  1. ENBREL [Suspect]
     Indication: RHEUMATOID ARTHRITIS
     Dosage: 50 MG, QWK
     Route: 058
  2. METHOTREXATE [Concomitant]
     Dosage: 2.5 MG, UNK
     Route: 048
  3. CIPRO                              /00697201/ [Concomitant]
     Dosage: 500 MG, UNK
     Route: 048
  4. TRAMADOL HCL [Concomitant]
     Dosage: 50 MG, UNK
     Route: 048
  5. MUCINEX [Concomitant]
     Dosage: 1200 MG, UNK
     Route: 048

REACTIONS (1)
  - Sinusitis [Unknown]
